FAERS Safety Report 10562659 (Version 1)
Quarter: 2014Q4

REPORT INFORMATION
  Report Type: Spontaneous
  Country: US (occurrence: None)
  Receive Date: 20141103
  Receipt Date: 20141103
  Transmission Date: 20150529
  Serious: No
  Sender: FDA-Public Use
  Company Number: None

PATIENT
  Age: 53 Year
  Sex: Female
  Weight: 66.23 kg

DRUGS (1)
  1. ALENDRONATE 10MG TEVA [Suspect]
     Active Substance: ALENDRONATE SODIUM
     Indication: OSTEOPOROSIS
     Route: 048
     Dates: start: 20141015, end: 20141030

REACTIONS (4)
  - Noninfective gingivitis [None]
  - Pain in extremity [None]
  - Stomatitis [None]
  - Bone pain [None]

NARRATIVE: CASE EVENT DATE: 20141020
